FAERS Safety Report 8429017-7 (Version None)
Quarter: 2012Q2

REPORT INFORMATION
  Report Type: 
  Country: None (occurrence: None)
  Receive Date: 20120612
  Receipt Date: 20120604
  Transmission Date: 20120825
  Serious: Yes (Life-Threatening, Hospitalization, Other)
  Sender: FDA-Public Use
  Company Number: SE-PFIZER INC-2012022742

PATIENT
  Age: 53 Year
  Sex: Female
  Weight: 92 kg

DRUGS (8)
  1. DOSTINEX [Concomitant]
     Indication: ENDOCRINE DISORDER
     Dosage: UNK
     Dates: start: 20010420
  2. SOMATROPIN [Suspect]
     Indication: GROWTH HORMONE DEFICIENCY
     Dosage: 0.6 MG, DAILY 7 INJECTIONS/WEEK
     Dates: start: 19970903, end: 20111019
  3. ESTRACOMBI ^NOVARTIS^ [Concomitant]
     Indication: LUTEINISING HORMONE DEFICIENCY
     Dosage: UNK
     Dates: start: 20060120
  4. LEVOTHYROXINE SODIUM [Concomitant]
     Indication: BLOOD THYROID STIMULATING HORMONE DECREASED
     Dosage: UNK
     Dates: start: 19941215
  5. LEVOTHYROXINE SODIUM [Concomitant]
     Indication: PRIMARY HYPOTHYROIDISM
  6. ESTRACOMBI ^NOVARTIS^ [Concomitant]
     Indication: BLOOD FOLLICLE STIMULATING HORMONE DECREASED
  7. ESTRACOMBI ^NOVARTIS^ [Concomitant]
     Indication: HYPOGONADISM FEMALE
  8. HYDROCORTISONE [Concomitant]
     Indication: BLOOD CORTICOTROPHIN DECREASED
     Dosage: UNK
     Dates: start: 20060110

REACTIONS (1)
  - MALIGNANT MELANOMA [None]
